FAERS Safety Report 25247322 (Version 1)
Quarter: 2025Q2

REPORT INFORMATION
  Report Type: Spontaneous
  Country: CN (occurrence: CN)
  Receive Date: 20250428
  Receipt Date: 20250428
  Transmission Date: 20250716
  Serious: Yes (Hospitalization, Other)
  Sender: GENUS LIFESCIENCES
  Company Number: CN-Genus_Lifesciences-USA-ALL0580202500127

PATIENT
  Age: 32 Year
  Sex: Female

DRUGS (1)
  1. ASPIRIN\CARISOPRODOL [Suspect]
     Active Substance: ASPIRIN\CARISOPRODOL
     Indication: Pre-eclampsia
     Route: 048
     Dates: end: 2025

REACTIONS (1)
  - Haemorrhage intracranial [Recovered/Resolved]

NARRATIVE: CASE EVENT DATE: 20250101
